FAERS Safety Report 23956602 (Version 1)
Quarter: 2024Q2

REPORT INFORMATION
  Report Type: Spontaneous
  Country: US (occurrence: None)
  Receive Date: 20240607
  Receipt Date: 20240607
  Transmission Date: 20240715
  Serious: Yes (Death)
  Sender: FDA-Public Use
  Company Number: None

PATIENT
  Age: 66 Year
  Sex: Female

DRUGS (1)
  1. TRODELVY [Suspect]
     Active Substance: SACITUZUMAB GOVITECAN-HZIY
     Indication: Breast cancer metastatic
     Dosage: 730 MG GIVEN ONCE INTRAVENOUS
     Route: 042
     Dates: start: 20240521, end: 20240606

REACTIONS (9)
  - Ascites [None]
  - Dysphagia [None]
  - Leukopenia [None]
  - Thrombocytopenia [None]
  - Troponin increased [None]
  - Blood lactic acid increased [None]
  - Shock [None]
  - Stress cardiomyopathy [None]
  - Acquired left ventricle outflow tract obstruction [None]

NARRATIVE: CASE EVENT DATE: 20240521
